FAERS Safety Report 21336293 (Version 2)
Quarter: 2022Q3

REPORT INFORMATION
  Report Type: Spontaneous
  Country: IT (occurrence: IT)
  Receive Date: 20220915
  Receipt Date: 20220928
  Transmission Date: 20221026
  Serious: Yes (Death)
  Sender: FDA-Public Use
  Company Number: IT-TEVA-2022-IT-2072304

PATIENT
  Age: 41 Year
  Sex: Male

DRUGS (8)
  1. DIAZEPAM [Suspect]
     Active Substance: DIAZEPAM
     Indication: Drug abuse
     Route: 065
  2. LORAZEPAM [Suspect]
     Active Substance: LORAZEPAM
     Indication: Drug abuse
     Route: 065
  3. TRIAZOLAM [Suspect]
     Active Substance: TRIAZOLAM
     Indication: Drug abuse
     Route: 065
  4. BUTYLSCOPOLAMINE BROMIDE [Suspect]
     Active Substance: BUTYLSCOPOLAMINE BROMIDE
     Indication: Drug abuse
     Dosage: SMOKED THE SCOPOLAMINE-BUTYLBROMIDE
     Route: 055
  5. VALPROATE SODIUM [Suspect]
     Active Substance: VALPROATE SODIUM
     Indication: Drug abuse
     Route: 065
  6. SEROQUEL [Suspect]
     Active Substance: QUETIAPINE FUMARATE
     Indication: Drug abuse
     Route: 065
  7. REMERON [Suspect]
     Active Substance: MIRTAZAPINE
     Indication: Drug abuse
     Route: 065
  8. IBUPROFEN [Concomitant]
     Active Substance: IBUPROFEN
     Indication: Product used for unknown indication
     Route: 065

REACTIONS (7)
  - Brain oedema [Fatal]
  - Pulmonary oedema [Fatal]
  - Depressed level of consciousness [Fatal]
  - Arrhythmia [Fatal]
  - Toxicity to various agents [Fatal]
  - Overdose [Fatal]
  - Drug abuse [Fatal]
